FAERS Safety Report 5629396-X (Version None)
Quarter: 2008Q1

REPORT INFORMATION
  Report Type: 
  Country: None (occurrence: None)
  Receive Date: 20080215
  Receipt Date: 20080215
  Transmission Date: 20080703
  Serious: No
  Sender: FDA-Public Use
  Company Number: None

PATIENT
  Sex: Male
  Weight: 72.73 kg

DRUGS (4)
  1. BEVACIZUMAB (RHUMAB VEGF) [Suspect]
     Dosage: 762 MG
  2. CAMPTOSAR [Suspect]
     Dosage: 588 MG
  3. ELOXATIN [Suspect]
     Dosage: 334 MG
  4. DILTIAZEM [Concomitant]

REACTIONS (2)
  - DIASTOLIC DYSFUNCTION [None]
  - LEFT VENTRICULAR DYSFUNCTION [None]
